FAERS Safety Report 8256289-4 (Version None)
Quarter: 2012Q2

REPORT INFORMATION
  Report Type: 
  Country: None (occurrence: None)
  Receive Date: 20120403
  Receipt Date: 20120329
  Transmission Date: 20120825
  Serious: Yes (Hospitalization)
  Sender: FDA-Public Use
  Company Number: CN-US-EMD SERONO, INC.-7120700

PATIENT
  Sex: Female
  Weight: 57 kg

DRUGS (2)
  1. GONAL-F [Suspect]
     Route: 058
     Dates: start: 20101220, end: 20101220
  2. GONAL-F [Suspect]
     Indication: IN VITRO FERTILISATION
     Route: 058
     Dates: start: 20101211, end: 20101219

REACTIONS (1)
  - ABORTION SPONTANEOUS [None]
